FAERS Safety Report 7986634-6 (Version None)
Quarter: 2011Q4

REPORT INFORMATION
  Report Type: 
  Country: None (occurrence: None)
  Receive Date: 20111216
  Receipt Date: 20110316
  Transmission Date: 20120403
  Serious: Yes (Hospitalization, Other)
  Sender: FDA-Public Use
  Company Number: US-BRISTOL-MYERS SQUIBB COMPANY-15541428

PATIENT
  Age: 23 Year
  Sex: Male

DRUGS (1)
  1. ABILIFY [Suspect]
     Indication: MAJOR DEPRESSION
     Dosage: APPROX 4 MONTHS.
     Route: 048
     Dates: start: 20091217, end: 20101201

REACTIONS (2)
  - TREATMENT NONCOMPLIANCE [None]
  - TYPE 1 DIABETES MELLITUS [None]
